FAERS Safety Report 9445801 (Version 1)
Quarter: 2013Q3

REPORT INFORMATION
  Report Type: Spontaneous
  Country: US (occurrence: US)
  Receive Date: 20130807
  Receipt Date: 20130807
  Transmission Date: 20140515
  Serious: Yes (Other)
  Sender: FDA-Public Use
  Company Number: CHPA2013US012370

PATIENT
  Age: 37 Year
  Sex: Female

DRUGS (3)
  1. GAS-X EXTSTR CHEW TABS PEPPERMINT CREME [Suspect]
     Indication: ABDOMINAL PAIN UPPER
     Dosage: 2 DF, AS NEEDED AFTER MEALS
     Route: 048
  2. GAS-X EXTSTR CHEW TABS PEPPERMINT CREME [Suspect]
     Indication: ABDOMINAL DISTENSION
  3. GAS-X EXTSTR CHEW TABS PEPPERMINT CREME [Suspect]
     Indication: FLATULENCE

REACTIONS (3)
  - Coeliac disease [Not Recovered/Not Resolved]
  - Abdominal pain upper [Not Recovered/Not Resolved]
  - Off label use [Unknown]
